FAERS Safety Report 9557559 (Version 1)
Quarter: 2013Q3

REPORT INFORMATION
  Report Type: Spontaneous
  Country: GB (occurrence: None)
  Receive Date: 20130923
  Receipt Date: 20130923
  Transmission Date: 20140515
  Serious: Yes (Life-Threatening, Hospitalization)
  Sender: FDA-Public Use
  Company Number: AUR-APL-2013-07737

PATIENT
  Age: 50 Year
  Sex: Female
  Weight: 72 kg

DRUGS (6)
  1. CIPROFLOXACIN [Suspect]
     Indication: BLADDER PAIN
     Dosage: 2 DOSAGE FORMS (1 DOSAGE FORMS, 2 IN 1 D), ORAL?
     Route: 048
     Dates: start: 20110101, end: 20110107
  2. CIPROFLOXACIN [Suspect]
     Indication: URINARY TRACT INFECTION
     Dosage: 2 DOSAGE FORMS (1 DOSAGE FORMS, 2 IN 1 D), ORAL?
     Route: 048
     Dates: start: 20110101, end: 20110107
  3. IBUPROFEN [Suspect]
     Indication: PAIN
     Dosage: 1200 MG (400MG, 3 IN 1 D), ORAL
     Route: 048
     Dates: start: 20101231
  4. AUGMENTIN (SPEKTRAMOX) [Concomitant]
  5. OXYCONTIN (OXYCODONE HYDROCHLORIDE) [Concomitant]
  6. TRIMETHOPRIM (TRIMETHOPRIM) [Concomitant]

REACTIONS (54)
  - Neuropathy peripheral [None]
  - Tendon pain [None]
  - Arthralgia [None]
  - Cognitive disorder [None]
  - Pain [None]
  - Psychomotor skills impaired [None]
  - Reflexes abnormal [None]
  - Insomnia [None]
  - Feeling abnormal [None]
  - Balance disorder [None]
  - Burning sensation [None]
  - Malaise [None]
  - Fear of disease [None]
  - Memory impairment [None]
  - Formication [None]
  - Pain of skin [None]
  - Pruritus [None]
  - Rash [None]
  - Skin ulcer [None]
  - Sensory disturbance [None]
  - Vitreous floaters [None]
  - Tinnitus [None]
  - Hyperacusis [None]
  - Hearing impaired [None]
  - Panic reaction [None]
  - Dyskinesia [None]
  - Muscle twitching [None]
  - Musculoskeletal pain [None]
  - Joint stiffness [None]
  - Gait disturbance [None]
  - Hyperhidrosis [None]
  - Breast pain [None]
  - Alopecia [None]
  - Contusion [None]
  - Asthenia [None]
  - Fatigue [None]
  - Joint swelling [None]
  - Local swelling [None]
  - Dyspnoea [None]
  - Palpitations [None]
  - Weight decreased [None]
  - Poisoning [None]
  - Headache [None]
  - Photophobia [None]
  - Eye pain [None]
  - Vomiting [None]
  - Neuralgia [None]
  - Cellulitis [None]
  - Neurotoxicity [None]
  - Disorientation [None]
  - Visual acuity reduced [None]
  - Dry eye [None]
  - Skin atrophy [None]
  - Drug interaction [None]
